FAERS Safety Report 12762858 (Version 1)
Quarter: 2016Q3

REPORT INFORMATION
  Report Type: Report from Study
  Country: US (occurrence: US)
  Receive Date: 20160920
  Receipt Date: 20160920
  Transmission Date: 20161109
  Serious: Yes (Other)
  Sender: FDA-Public Use
  Company Number: US-GUERBET LLC-1057486

PATIENT
  Age: 55 Year
  Sex: Male

DRUGS (1)
  1. CYSTO-CONRAY II [Suspect]
     Active Substance: IOTHALAMATE MEGLUMINE
     Indication: PYELOGRAM RETROGRADE

REACTIONS (1)
  - Anaphylactoid reaction [Recovered/Resolved]
